FAERS Safety Report 18237000 (Version 1)
Quarter: 2020Q3

REPORT INFORMATION
  Report Type: Spontaneous
  Country: FR (occurrence: FR)
  Receive Date: 20200907
  Receipt Date: 20200907
  Transmission Date: 20201103
  Serious: Yes (Hospitalization, Other)
  Sender: FDA-Public Use
  Company Number: FR-AUROBINDO-AUR-APL-2020-046786

PATIENT
  Sex: Female

DRUGS (3)
  1. LOXAPAC [Suspect]
     Active Substance: LOXAPINE
     Indication: ANXIETY
     Dosage: 30 MILLIGRAM, ONCE A DAY
     Route: 048
     Dates: start: 20200816
  2. CLOZAPINE. [Suspect]
     Active Substance: CLOZAPINE
     Indication: ANXIETY
     Dosage: 37.5 MILLIGRAM, ONCE A DAY
     Route: 048
     Dates: start: 20200813
  3. LOXAPAC [Suspect]
     Active Substance: LOXAPINE
     Indication: ANXIETY
     Dosage: 10 MILLIGRAM, ONCE A DAY
     Route: 048
     Dates: start: 20200814, end: 20200816

REACTIONS (1)
  - Neuroleptic malignant syndrome [Recovering/Resolving]

NARRATIVE: CASE EVENT DATE: 20200816
